FAERS Safety Report 14733673 (Version 1)
Quarter: 2018Q2

REPORT INFORMATION
  Report Type: Spontaneous
  Country: US (occurrence: US)
  Receive Date: 20180403
  Receipt Date: 20180403
  Transmission Date: 20180711
  Serious: No
  Sender: FDA-Public Use
  Company Number: None

PATIENT

DRUGS (1)
  1. BLINATUMOMAB [Suspect]
     Active Substance: BLINATUMOMAB
     Dosage: ?          OTHER FREQUENCY:CONTINUOUS INFUSIO;?
     Route: 041

REACTIONS (2)
  - Incorrect dose administered [None]
  - Product label confusion [None]
